FAERS Safety Report 22772746 (Version 2)
Quarter: 2023Q4

REPORT INFORMATION
  Report Type: Spontaneous
  Country: PT (occurrence: PT)
  Receive Date: 20230801
  Receipt Date: 20231025
  Transmission Date: 20240110
  Serious: Yes (Disabling)
  Sender: FDA-Public Use
  Company Number: None

PATIENT
  Age: 51 Year
  Sex: Female

DRUGS (5)
  1. TOPAMAX [Suspect]
     Active Substance: TOPIRAMATE
     Indication: Seizure
     Dosage: 1  WEEK: 1CP 25MG/DAY
     Route: 048
     Dates: start: 20230403, end: 20230410
  2. TOPAMAX [Suspect]
     Active Substance: TOPIRAMATE
     Dosage: 2  WEEK: 25MG + 25MG/DAY
     Route: 048
     Dates: start: 20230411, end: 20230417
  3. TOPAMAX [Suspect]
     Active Substance: TOPIRAMATE
     Route: 048
     Dates: start: 20230418, end: 20230501
  4. TOPAMAX [Suspect]
     Active Substance: TOPIRAMATE
     Dosage: THE USER SUSPENDED THIS DOSE, BY HERSELF, HOWEVER AFTER CONVULSION, REINTRODUCED THE DRUG.
     Route: 048
     Dates: start: 20230605, end: 202309
  5. TOPAMAX [Suspect]
     Active Substance: TOPIRAMATE
     Dosage: 5  WEEK: 50MG 12/12H. THEN, PHYSICIAN REDUCED DOSE (05-06-2023) TO 25MG 12/12H DUE TO RAM.
     Route: 048
     Dates: start: 20230502, end: 20230605

REACTIONS (3)
  - Somnolence [Recovered/Resolved]
  - Apathy [Recovered/Resolved]
  - Decreased appetite [Recovered/Resolved]

NARRATIVE: CASE EVENT DATE: 20230403
